FAERS Safety Report 10419248 (Version 1)
Quarter: 2014Q3

REPORT INFORMATION
  Report Type: Spontaneous
  Country: US (occurrence: None)
  Receive Date: 20140701
  Receipt Date: 20140701
  Transmission Date: 20150326
  Serious: No
  Sender: FDA-Public Use
  Company Number: 1000067671

PATIENT
  Age: 82 Year
  Sex: Female

DRUGS (3)
  1. CARBIDOPA/LEVODOPA (SINEMET) [Concomitant]
  2. PANTOPRAZOLE (PANTOPRAZOLE) [Suspect]
     Active Substance: PANTOPRAZOLE SODIUM
     Indication: GASTROOESOPHAGEAL REFLUX DISEASE
     Dates: start: 2014, end: 201405
  3. LINZESS [Suspect]
     Active Substance: LINACLOTIDE
     Indication: CONSTIPATION
     Route: 048
     Dates: start: 20140513, end: 201405

REACTIONS (2)
  - Asthenia [None]
  - Drug ineffective [None]

NARRATIVE: CASE EVENT DATE: 201405
